FAERS Safety Report 19921567 (Version 1)
Quarter: 2021Q4

REPORT INFORMATION
  Report Type: Spontaneous
  Country: US (occurrence: US)
  Receive Date: 20211005
  Receipt Date: 20211005
  Transmission Date: 20220303
  Serious: No
  Sender: FDA-Public Use
  Company Number: US-TAKEDA-2021TUS059173

PATIENT
  Sex: Female
  Weight: 50 kg

DRUGS (1)
  1. CARBATROL [Suspect]
     Active Substance: CARBAMAZEPINE
     Indication: Epilepsy
     Dosage: 400 MILLIGRAM, BID
     Route: 065

REACTIONS (10)
  - Swelling face [Unknown]
  - Heart rate increased [Unknown]
  - Electric shock sensation [Recovered/Resolved]
  - Road traffic accident [Unknown]
  - Memory impairment [Unknown]
  - Somnolence [Unknown]
  - Balance disorder [Unknown]
  - Blood sodium decreased [Unknown]
  - Nervous system disorder [Unknown]
  - Adverse drug reaction [Unknown]
